FAERS Safety Report 9045176 (Version 2)
Quarter: 2013Q1

REPORT INFORMATION
  Report Type: Spontaneous
  Country: AU (occurrence: AU)
  Receive Date: 20130130
  Receipt Date: 20130306
  Transmission Date: 20140127
  Serious: Yes (Other)
  Sender: FDA-Public Use
  Company Number: AU-009507513-1301AUS011271

PATIENT
  Age: 53 Year
  Sex: Male
  Weight: 104 kg

DRUGS (2)
  1. SAPHRIS [Suspect]
     Dosage: 10 MG, QD
     Route: 060
     Dates: start: 20120914
  2. LITHIUM CARBONATE [Interacting]
     Dosage: 1500 MG, QD
     Route: 048

REACTIONS (6)
  - Toxicity to various agents [Recovered/Resolved]
  - Tremor [Unknown]
  - Dysphemia [Unknown]
  - Confusional state [Unknown]
  - Dysarthria [Unknown]
  - Drug interaction [Unknown]
